FAERS Safety Report 7617296-5 (Version None)
Quarter: 2011Q3

REPORT INFORMATION
  Report Type: 
  Country: None (occurrence: None)
  Receive Date: 20110718
  Receipt Date: 20110704
  Transmission Date: 20111222
  Serious: Yes (Hospitalization, Disabling, Other)
  Sender: FDA-Public Use
  Company Number: PHHY2010CA74458

PATIENT
  Sex: Female

DRUGS (5)
  1. CELEXA [Concomitant]
     Dosage: 20 MG, UNK
  2. NEXIUM [Concomitant]
     Dosage: 40 MG, UNK
  3. CODEINE SULFATE [Concomitant]
  4. HYDROCHLOROTHIAZIDE [Concomitant]
     Dosage: 12.5 MG, UNK
  5. ZOLEDRONOC ACID [Suspect]
     Indication: OSTEOPOROSIS
     Dosage: 5 MG
     Route: 042
     Dates: start: 20101026

REACTIONS (17)
  - OEDEMA PERIPHERAL [None]
  - PAIN [None]
  - BURNING SENSATION [None]
  - PALPITATIONS [None]
  - DRY MOUTH [None]
  - FATIGUE [None]
  - ALOPECIA [None]
  - JOINT SWELLING [None]
  - PAIN IN EXTREMITY [None]
  - MOVEMENT DISORDER [None]
  - COUGH [None]
  - MYALGIA [None]
  - SYNOVITIS [None]
  - ARTHRALGIA [None]
  - HYPOAESTHESIA [None]
  - GROIN PAIN [None]
  - HAEMORRHOIDS [None]
